FAERS Safety Report 8581381-4 (Version None)
Quarter: 2012Q3

REPORT INFORMATION
  Report Type: 
  Country: None (occurrence: None)
  Receive Date: 20120727
  Receipt Date: 20120719
  Transmission Date: 20120928
  Serious: Yes (Other)
  Sender: FDA-Public Use
  Company Number: AUR-APL-2012-03118

PATIENT
  Age: 65 Year
  Sex: Female
  Weight: 81.6475 kg

DRUGS (3)
  1. HYDROXYZINE [Concomitant]
  2. ALENDRONATE SODIUM [Suspect]
     Indication: BONE DISORDER
     Dosage: 70 MG ONCE WEEKLY (70 MG, 1 IN 1 WK), ORAL
     Route: 048
     Dates: start: 20120619
  3. DILANTIN [Concomitant]

REACTIONS (6)
  - WEIGHT INCREASED [None]
  - FLUID RETENTION [None]
  - FEELING ABNORMAL [None]
  - MYALGIA [None]
  - TREMOR [None]
  - ARTHRALGIA [None]
